FAERS Safety Report 4505132-5 (Version None)
Quarter: 2004Q4

REPORT INFORMATION
  Report Type: 
  Country: None (occurrence: None)
  Receive Date: 20041018
  Receipt Date: 20040420
  Transmission Date: 20050328
  Serious: Yes (Other)
  Sender: FDA-Public Use
  Company Number: 200411354US

PATIENT
  Age: 53 Year
  Sex: Female
  Weight: 69.54 kg

DRUGS (10)
  1. PENTOXIFYLLINE [Suspect]
     Indication: DIABETIC NEPHROPATHY
     Dosage: 400 MG TID PO
     Route: 048
     Dates: start: 19880101
  2. ESTRADIOL (VIVELLE ) [Concomitant]
  3. PRAVASTATIN SODIUM(PRAVACHOL) [Concomitant]
  4. INSULIN [Concomitant]
  5. THIAMINE HCL [Concomitant]
  6. RIBOFLAVIN TAB [Concomitant]
  7. NICOTINAMIDE [Concomitant]
  8. PYRIDOXINE HYDROCHLORIDE(B COMPLEX) [Concomitant]
  9. VITAMIN E [Concomitant]
  10. MULTI-VITAMIN [Concomitant]

REACTIONS (4)
  - ANAEMIA [None]
  - LYMPHOCYTE COUNT INCREASED [None]
  - LYMPHOCYTIC LEUKAEMIA [None]
  - WHITE BLOOD CELL COUNT INCREASED [None]
